FAERS Safety Report 24550622 (Version 1)
Quarter: 2024Q4

REPORT INFORMATION
  Report Type: Spontaneous
  Country: US (occurrence: US)
  Receive Date: 20241025
  Receipt Date: 20241025
  Transmission Date: 20250115
  Serious: No
  Sender: BOEHRINGER INGELHEIM
  Company Number: US-Komodo Health-a23aa000003vCVlAAM

PATIENT
  Age: 74 Year
  Sex: Male

DRUGS (1)
  1. JARDIANCE [Suspect]
     Active Substance: EMPAGLIFLOZIN
     Indication: Type 2 diabetes mellitus
     Dosage: 10MG DAILY
     Dates: start: 202408

REACTIONS (1)
  - Weight decreased [Not Recovered/Not Resolved]

NARRATIVE: CASE EVENT DATE: 20240801
